FAERS Safety Report 6272564-7 (Version None)
Quarter: 2009Q3

REPORT INFORMATION
  Report Type: 
  Country: None (occurrence: None)
  Receive Date: 20090717
  Receipt Date: 20090710
  Transmission Date: 20100115
  Serious: Yes (Other)
  Sender: FDA-Public Use
  Company Number: PHHY2009CA28681

PATIENT
  Sex: Female

DRUGS (1)
  1. SANDOSTATIN LAR [Suspect]
     Indication: PANCREATIC NEUROENDOCRINE TUMOUR
     Dosage: 20 MG EVERY 4 WEEKS
     Route: 030
     Dates: start: 20070125, end: 20070712

REACTIONS (5)
  - ABDOMINAL PAIN UPPER [None]
  - ALOPECIA [None]
  - HIATUS HERNIA [None]
  - METASTASIS [None]
  - WEIGHT INCREASED [None]
